FAERS Safety Report 24773433 (Version 1)
Quarter: 2024Q4

REPORT INFORMATION
  Report Type: Spontaneous
  Country: US (occurrence: US)
  Receive Date: 20241225
  Receipt Date: 20241225
  Transmission Date: 20250115
  Serious: Yes (Death, Other)
  Sender: AMGEN
  Company Number: US-AMGEN-USASP2024251111

PATIENT

DRUGS (2)
  1. CARFILZOMIB [Suspect]
     Active Substance: CARFILZOMIB
     Indication: Plasma cell myeloma refractory
     Dosage: UNK, 20-56 MG/M2) ON DAY 1, 2,8, 9, 15, AND 16
     Route: 040
  2. PANOBINOSTAT [Suspect]
     Active Substance: PANOBINOSTAT
     Indication: Plasma cell myeloma refractory
     Dosage: UNK, 20-30 MG ON DAY 1, 3, 5, 15, 17,19 OF EACH 28-DAY CYCLE
     Route: 048

REACTIONS (1)
  - Cardiac failure [Fatal]
